FAERS Safety Report 6012368-3 (Version None)
Quarter: 2008Q4

REPORT INFORMATION
  Report Type: 
  Country: None (occurrence: None)
  Receive Date: 20081218
  Receipt Date: 20080915
  Transmission Date: 20090506
  Serious: No
  Sender: FDA-Public Use
  Company Number: US-ASTRAZENECA-2008UW19170

PATIENT
  Age: 80 Year
  Sex: Female

DRUGS (2)
  1. SYMBICORT [Suspect]
     Indication: ASTHMA
     Dosage: 160/4.5 MCG 120 INHALATIONS, 1 PUFF TWICE A DAY
     Route: 055
     Dates: start: 20080101
  2. AVAPRO [Concomitant]

REACTIONS (5)
  - BLOOD PRESSURE INCREASED [None]
  - CHEST PAIN [None]
  - DYSPNOEA [None]
  - HEADACHE [None]
  - THROAT IRRITATION [None]
